FAERS Safety Report 6076015-7 (Version None)
Quarter: 2009Q1

REPORT INFORMATION
  Report Type: 
  Country: None (occurrence: None)
  Receive Date: 20090212
  Receipt Date: 20090114
  Transmission Date: 20090719
  Serious: Yes (Other)
  Sender: FDA-Public Use
  Company Number: GB-PFIZER INC-2009157094

PATIENT

DRUGS (1)
  1. CHAMPIX [Suspect]
     Indication: SMOKING CESSATION THERAPY
     Route: 048
     Dates: start: 20080723, end: 20080814

REACTIONS (4)
  - APATHY [None]
  - DEPRESSED MOOD [None]
  - IRRITABILITY [None]
  - TEARFULNESS [None]
